FAERS Safety Report 7823677-7 (Version None)
Quarter: 2011Q4

REPORT INFORMATION
  Report Type: 
  Country: None (occurrence: None)
  Receive Date: 20111014
  Receipt Date: 20111011
  Transmission Date: 20120403
  Serious: Yes (Death)
  Sender: FDA-Public Use
  Company Number: 201111329

PATIENT
  Age: 51 Year
  Sex: Female

DRUGS (5)
  1. DILAUDID [Concomitant]
  2. BUPIVACAINE HCL [Concomitant]
  3. DROPERIDOL [Concomitant]
  4. CLONIDINE [Concomitant]
  5. LIORESAL [Suspect]
     Indication: MUSCLE SPASTICITY
     Dosage: 45.18 MCG, DAILY, INTRATHECAL
     Route: 037

REACTIONS (1)
  - COLON CANCER METASTATIC [None]
